FAERS Safety Report 5375520-6 (Version None)
Quarter: 2007Q2

REPORT INFORMATION
  Report Type: 
  Country: None (occurrence: None)
  Receive Date: 20070629
  Receipt Date: 20070620
  Transmission Date: 20071010
  Serious: Yes (Other)
  Sender: FDA-Public Use
  Company Number: CA-PFIZER INC-2007050624

PATIENT
  Age: 59 Year
  Sex: Female

DRUGS (6)
  1. LYRICA [Suspect]
     Indication: INTERVERTEBRAL DISC COMPRESSION
     Route: 048
  2. LYRICA [Interacting]
     Indication: ARTHRALGIA
  3. PREDNISONE TAB [Interacting]
     Dosage: DAILY DOSE:25MG
  4. PERCOCET [Concomitant]
  5. NABUMETONE [Concomitant]
  6. ACTONEL [Concomitant]

REACTIONS (4)
  - DRUG INTERACTION [None]
  - INSOMNIA [None]
  - NAUSEA [None]
  - PAIN [None]
